FAERS Safety Report 6053864-2 (Version None)
Quarter: 2009Q1

REPORT INFORMATION
  Report Type: 
  Country: None (occurrence: None)
  Receive Date: 20090123
  Receipt Date: 20090116
  Transmission Date: 20090719
  Serious: Yes (Other)
  Sender: FDA-Public Use
  Company Number: ADR0192009

PATIENT
  Sex: Female

DRUGS (5)
  1. ALENDRONIC ACID TABLETS [Suspect]
     Indication: OSTEOMALACIA
     Dosage: 1 TABLET WEEKLY ORAL
     Route: 048
     Dates: start: 20081101, end: 20081201
  2. FEMARA [Concomitant]
  3. FOSAMAX [Concomitant]
  4. CALCIUM [Concomitant]
  5. TAMOXIFEN CITRATE [Concomitant]

REACTIONS (2)
  - PAIN [None]
  - RASH MACULO-PAPULAR [None]
